FAERS Safety Report 11483647 (Version 1)
Quarter: 2015Q3

REPORT INFORMATION
  Report Type: Spontaneous
  Country: US (occurrence: US)
  Receive Date: 20150903
  Receipt Date: 20150903
  Transmission Date: 20151125
  Serious: No
  Sender: FDA-Public Use
  Company Number: US-ELI_LILLY_AND_COMPANY-US201207004959

PATIENT
  Sex: Female

DRUGS (2)
  1. CYMBALTA [Suspect]
     Active Substance: DULOXETINE HYDROCHLORIDE
     Indication: LARYNGOSPASM
     Dosage: 30 MG, QD
     Route: 065
     Dates: start: 20120712
  2. CYMBALTA [Suspect]
     Active Substance: DULOXETINE HYDROCHLORIDE
     Dosage: 30 MG, QD
     Route: 065

REACTIONS (6)
  - Hallucination [Unknown]
  - Off label use [Unknown]
  - Feeling abnormal [Unknown]
  - Poor quality sleep [Unknown]
  - Insomnia [Unknown]
  - Dry mouth [Unknown]
